FAERS Safety Report 12496781 (Version 1)
Quarter: 2016Q2

REPORT INFORMATION
  Report Type: Report from Study
  Country: DE (occurrence: DE)
  Receive Date: 20160624
  Receipt Date: 20160624
  Transmission Date: 20160815
  Serious: Yes (Hospitalization)
  Sender: FDA-Public Use
  Company Number: US-ASTRAZENECA-2016SE68754

PATIENT
  Age: 9 Month
  Sex: Female
  Weight: 8.4 kg

DRUGS (5)
  1. SILDENAFIL. [Concomitant]
     Active Substance: SILDENAFIL
     Indication: PRODUCT USED FOR UNKNOWN INDICATION
     Dates: start: 20150522, end: 20160422
  2. SYNAGIS [Suspect]
     Active Substance: PALIVIZUMAB
     Indication: SCIMITAR SYNDROME
     Route: 030
     Dates: start: 20151001, end: 20151001
  3. D-FLUORETTEN [Concomitant]
     Indication: PRODUCT USED FOR UNKNOWN INDICATION
     Dates: start: 20150210, end: 20160515
  4. OMEPRAZOLE. [Concomitant]
     Active Substance: OMEPRAZOLE
     Indication: PRODUCT USED FOR UNKNOWN INDICATION
     Dates: start: 20150422, end: 20160422
  5. SYNAGIS [Suspect]
     Active Substance: PALIVIZUMAB
     Indication: ANTIVIRAL PROPHYLAXIS
     Route: 030
     Dates: start: 20151001, end: 20151001

REACTIONS (5)
  - Respiratory failure [Recovered/Resolved]
  - Pneumonia [Recovered/Resolved]
  - Bronchitis [Recovered/Resolved]
  - Respiratory tract infection [Recovered/Resolved]
  - Gastroenteritis enteroviral [Unknown]

NARRATIVE: CASE EVENT DATE: 20151125
